FAERS Safety Report 10177837 (Version 1)
Quarter: 2014Q2

REPORT INFORMATION
  Report Type: Spontaneous
  Country: US (occurrence: US)
  Receive Date: 20140516
  Receipt Date: 20140516
  Transmission Date: 20141212
  Serious: No
  Sender: FDA-Public Use
  Company Number: US-SA-2013SA128066

PATIENT
  Sex: Female

DRUGS (5)
  1. SOLOSTAR [Suspect]
     Indication: DEVICE THERAPY
  2. APIDRA SOLOSTAR [Suspect]
     Indication: PRODUCT USED FOR UNKNOWN INDICATION
  3. SOLOSTAR [Suspect]
     Indication: DEVICE THERAPY
  4. LANTUS SOLOSTAR [Suspect]
     Indication: PRODUCT USED FOR UNKNOWN INDICATION
  5. VICTOZA [Concomitant]

REACTIONS (2)
  - Wrong drug administered [Unknown]
  - Incorrect product storage [Unknown]
